FAERS Safety Report 11862629 (Version 1)
Quarter: 2015Q4

REPORT INFORMATION
  Report Type: Spontaneous
  Country: SE (occurrence: SE)
  Receive Date: 20151223
  Receipt Date: 20151223
  Transmission Date: 20160305
  Serious: Yes (Other)
  Sender: FDA-Public Use
  Company Number: SE-009507513-1512SWE011030

PATIENT
  Age: 17 Year
  Sex: Female

DRUGS (5)
  1. GRAZAX [Suspect]
     Active Substance: PHLEUM PRATENSE POLLEN
     Indication: ASTHMA
     Dosage: 75,000 SQ-T, DAILY
     Route: 048
     Dates: start: 20150928, end: 20151108
  2. NASONEX [Concomitant]
     Active Substance: MOMETASONE FUROATE
     Dosage: UNK
  3. GRAZAX [Suspect]
     Active Substance: PHLEUM PRATENSE POLLEN
     Indication: CONJUNCTIVITIS ALLERGIC
  4. ALBUTEROL. [Concomitant]
     Active Substance: ALBUTEROL
     Dosage: UNK
  5. LIVOSTIN [Concomitant]
     Active Substance: LEVOCABASTINE HYDROCHLORIDE
     Dosage: UNK

REACTIONS (7)
  - Pharyngeal oedema [Recovered/Resolved]
  - Cough [Unknown]
  - Oral mucosal blistering [Recovered/Resolved]
  - Paraesthesia oral [Recovered/Resolved]
  - Respiratory tract haemorrhage [Recovered/Resolved]
  - Oropharyngeal pain [Recovered/Resolved]
  - Respiratory tract inflammation [Unknown]

NARRATIVE: CASE EVENT DATE: 20150928
